FAERS Safety Report 4680100-1 (Version None)
Quarter: 2005Q2

REPORT INFORMATION
  Report Type: 
  Country: None (occurrence: None)
  Receive Date: 20050531
  Receipt Date: 20050317
  Transmission Date: 20051028
  Serious: Yes (Hospitalization, Disabling)
  Sender: FDA-Public Use
  Company Number: 2001-03902

PATIENT
  Age: 35 Year
  Sex: Male
  Weight: 67 kg

DRUGS (8)
  1. TENOFOVIR DISOPROXIL FUMARATE(TENOFOVIR DISOPROXIL FUMARATE_) [Suspect]
     Indication: HIV INFECTION
     Dosage: 300 MG, ONCE A DAY, ORAL
     Route: 048
     Dates: start: 20011009, end: 20011107
  2. CIDOFOVIR (CIDOFOVIR) [Suspect]
     Indication: CYTOMEGALOVIRUS CHORIORETINITIS
     Dates: start: 20010801, end: 20011107
  3. NORVIR [Suspect]
     Dates: start: 20011001, end: 20011107
  4. AGENERASE [Concomitant]
  5. TRIZIVIR [Concomitant]
  6. CLARITHROMYCIN [Concomitant]
  7. ETHAMBUTOL (EHTAMBUTOL) [Concomitant]
  8. SULPHONE (DAPSONE) [Concomitant]

REACTIONS (6)
  - DRUG TOXICITY [None]
  - FANCONI SYNDROME [None]
  - METABOLIC ACIDOSIS [None]
  - PSEUDOMONAL SEPSIS [None]
  - RENAL FAILURE ACUTE [None]
  - RENAL TUBULAR DISORDER [None]
